FAERS Safety Report 20451803 (Version 1)
Quarter: 2022Q1

REPORT INFORMATION
  Report Type: Other
  Country: US (occurrence: None)
  Receive Date: 20220209
  Receipt Date: 20220209
  Transmission Date: 20220423
  Serious: Yes (Hospitalization, Other)
  Sender: FDA-Public Use
  Company Number: US-ROCHE-2317118

PATIENT
  Age: 53 Year
  Sex: Female
  Weight: 93.070 kg

DRUGS (15)
  1. OCREVUS [Suspect]
     Active Substance: OCRELIZUMAB
     Indication: Relapsing multiple sclerosis
     Route: 042
     Dates: start: 20180821
  2. OCREVUS [Suspect]
     Active Substance: OCRELIZUMAB
     Dosage: AFTER 2 WEEKS ANOTHER 300MG IV
     Route: 042
     Dates: start: 20191206
  3. OCREVUS [Suspect]
     Active Substance: OCRELIZUMAB
     Route: 042
     Dates: start: 20180806
  4. OCREVUS [Suspect]
     Active Substance: OCRELIZUMAB
     Route: 042
     Dates: start: 20180807
  5. OCREVUS [Suspect]
     Active Substance: OCRELIZUMAB
     Route: 042
     Dates: start: 20200606
  6. OCREVUS [Suspect]
     Active Substance: OCRELIZUMAB
     Route: 042
     Dates: start: 20180820
  7. OCREVUS [Suspect]
     Active Substance: OCRELIZUMAB
     Route: 042
     Dates: start: 20190606
  8. OCREVUS [Suspect]
     Active Substance: OCRELIZUMAB
     Route: 042
     Dates: start: 2018
  9. OXYCONTIN [Suspect]
     Active Substance: OXYCODONE HYDROCHLORIDE
     Indication: Pain
     Route: 065
  10. MODAFINIL [Suspect]
     Active Substance: MODAFINIL
     Indication: Fatigue
     Route: 065
     Dates: start: 20210828, end: 202108
  11. VITAMIN B12 [Concomitant]
     Active Substance: CYANOCOBALAMIN
     Dates: end: 2021
  12. VITAMIN B12 [Concomitant]
     Active Substance: CYANOCOBALAMIN
     Dates: start: 2021
  13. FISH OIL [Concomitant]
     Active Substance: FISH OIL
  14. ZINC [Concomitant]
     Active Substance: ZINC
  15. ATORVASTATIN [Concomitant]
     Active Substance: ATORVASTATIN
     Indication: Blood cholesterol increased

REACTIONS (20)
  - Headache [Recovered/Resolved]
  - Throat irritation [Recovered/Resolved]
  - Pain in extremity [Recovered/Resolved]
  - Alopecia [Unknown]
  - Memory impairment [Not Recovered/Not Resolved]
  - Asthenia [Not Recovered/Not Resolved]
  - Diverticulitis [Recovered/Resolved]
  - Therapeutic product effect decreased [Not Recovered/Not Resolved]
  - Fatigue [Not Recovered/Not Resolved]
  - Hernia [Recovered/Resolved]
  - Drug eruption [Unknown]
  - Poor venous access [Unknown]
  - COVID-19 [Recovering/Resolving]
  - Vitamin D decreased [Unknown]
  - Ill-defined disorder [Unknown]
  - Anxiety [Unknown]
  - Gait disturbance [Not Recovered/Not Resolved]
  - Balance disorder [Not Recovered/Not Resolved]
  - Multiple sclerosis relapse [Unknown]
  - Pain [Unknown]

NARRATIVE: CASE EVENT DATE: 20180821
